FAERS Safety Report 22528268 (Version 2)
Quarter: 2023Q2

REPORT INFORMATION
  Report Type: Spontaneous
  Country: JP (occurrence: JP)
  Receive Date: 20230607
  Receipt Date: 20230615
  Transmission Date: 20230721
  Serious: No
  Sender: FDA-Public Use
  Company Number: JP-MTPC-MTPC2023-0014346AA

PATIENT
  Age: 70 Year
  Sex: Male

DRUGS (2)
  1. EDARAVONE [Suspect]
     Active Substance: EDARAVONE
     Indication: Amyotrophic lateral sclerosis
     Dosage: 5 MILLILITER, QD
     Route: 048
     Dates: start: 20230526, end: 20230527
  2. EDARAVONE [Suspect]
     Active Substance: EDARAVONE
     Indication: Amyotrophic lateral sclerosis
     Dosage: 5 MILLILITER, QD
     Route: 048
     Dates: start: 20230526, end: 20230527

REACTIONS (1)
  - Laryngeal discomfort [Unknown]

NARRATIVE: CASE EVENT DATE: 20230527
